FAERS Safety Report 23099973 (Version 4)
Quarter: 2024Q1

REPORT INFORMATION
  Report Type: Report from Study
  Country: CN (occurrence: CN)
  Receive Date: 20231024
  Receipt Date: 20240102
  Transmission Date: 20240409
  Serious: Yes (Hospitalization)
  Sender: FDA-Public Use
  Company Number: CN-Eisai-EC-2023-150808

PATIENT
  Age: 59 Year
  Sex: Male
  Weight: 60 kg

DRUGS (12)
  1. LENVATINIB [Suspect]
     Active Substance: LENVATINIB
     Indication: Hepatocellular carcinoma
     Route: 048
     Dates: start: 20230320, end: 20230413
  2. LENVATINIB [Suspect]
     Active Substance: LENVATINIB
     Route: 048
     Dates: start: 20230417, end: 20230529
  3. LENVATINIB [Suspect]
     Active Substance: LENVATINIB
     Route: 048
     Dates: start: 20230530, end: 20230714
  4. LENVATINIB [Suspect]
     Active Substance: LENVATINIB
     Route: 048
     Dates: start: 20230727, end: 20230903
  5. LENVATINIB [Suspect]
     Active Substance: LENVATINIB
     Route: 048
     Dates: start: 20230914, end: 20230915
  6. LENVATINIB [Suspect]
     Active Substance: LENVATINIB
     Route: 048
     Dates: start: 20231012
  7. TORIPALIMAB [Suspect]
     Active Substance: TORIPALIMAB
     Indication: Hepatocellular carcinoma
     Dates: start: 20230320, end: 20230320
  8. TORIPALIMAB [Suspect]
     Active Substance: TORIPALIMAB
     Dates: start: 20230417, end: 20230823
  9. TORIPALIMAB [Suspect]
     Active Substance: TORIPALIMAB
     Dates: start: 20231012
  10. SHENG XUE XIAO BAN [Concomitant]
     Indication: Platelet count decreased
     Dosage: DOSE AND FREQUENCY UNKNOWN
  11. ENTECAVIR [Concomitant]
     Active Substance: ENTECAVIR
     Indication: Chronic hepatitis B
     Dosage: DOSE AND FREQUENCY UNKNOWN
     Dates: start: 20191007
  12. OXYCODONE HYDROCHLORIDE [Concomitant]
     Active Substance: OXYCODONE HYDROCHLORIDE
     Indication: Abdominal pain
     Dosage: DOSE AND FREQUENCY UNKNOWN
     Dates: start: 20230310

REACTIONS (3)
  - Platelet count decreased [Recovered/Resolved]
  - Abdominal infection [Recovered/Resolved]
  - Gastrointestinal haemorrhage [Recovered/Resolved]

NARRATIVE: CASE EVENT DATE: 20230413
